FAERS Safety Report 18056244 (Version 1)
Quarter: 2020Q3

REPORT INFORMATION
  Report Type: Spontaneous
  Country: US (occurrence: US)
  Receive Date: 20200722
  Receipt Date: 20200722
  Transmission Date: 20201103
  Serious: No
  Sender: FDA-Public Use
  Company Number: US-AKRON, INC.-2087622

PATIENT
  Sex: Female

DRUGS (1)
  1. ZIOPTAN [Suspect]
     Active Substance: TAFLUPROST
     Route: 047

REACTIONS (5)
  - Eye irritation [Unknown]
  - Eye pruritus [Unknown]
  - Chest discomfort [Unknown]
  - Feeling hot [Unknown]
  - Pruritus [Unknown]
